FAERS Safety Report 20597007 (Version 3)
Quarter: 2024Q1

REPORT INFORMATION
  Report Type: Spontaneous
  Country: JP (occurrence: JP)
  Receive Date: 20220315
  Receipt Date: 20240123
  Transmission Date: 20240410
  Serious: Yes (Life-Threatening, Hospitalization, Other)
  Sender: FDA-Public Use
  Company Number: JP-ABBVIE-22K-087-4311219-00

PATIENT
  Age: 70 Year
  Sex: Male

DRUGS (2)
  1. CARBIDOPA\LEVODOPA [Suspect]
     Active Substance: CARBIDOPA\LEVODOPA
     Indication: Parkinson^s disease
     Route: 050
  2. CARBIDOPA\LEVODOPA [Suspect]
     Active Substance: CARBIDOPA\LEVODOPA

REACTIONS (11)
  - Drug hypersensitivity [Recovered/Resolved]
  - Disseminated intravascular coagulation [Unknown]
  - Neuroleptic malignant syndrome [Recovered/Resolved]
  - Platelet count decreased [Recovered/Resolved]
  - Sepsis [Unknown]
  - Anti-platelet antibody positive [Recovered/Resolved]
  - Respiratory failure [Unknown]
  - Apnoeic attack [Unknown]
  - Type II hypersensitivity [Recovering/Resolving]
  - Type IV hypersensitivity reaction [Recovering/Resolving]
  - Lymphocyte stimulation test positive [Recovered/Resolved]
